FAERS Safety Report 13764178 (Version 7)
Quarter: 2019Q2

REPORT INFORMATION
  Report Type: Spontaneous
  Country: US (occurrence: US)
  Receive Date: 20170718
  Receipt Date: 20190603
  Transmission Date: 20190711
  Serious: Yes (Hospitalization, Other)
  Sender: FDA-Public Use
  Company Number: US-PFIZER INC-2017308386

PATIENT
  Age: 55 Year
  Sex: Female

DRUGS (4)
  1. XELJANZ XR [Suspect]
     Active Substance: TOFACITINIB CITRATE
     Dosage: 11 MG, UNK
     Dates: start: 201803
  2. XELJANZ XR [Suspect]
     Active Substance: TOFACITINIB CITRATE
     Dosage: 11 UNK, UNK
     Dates: start: 20150813
  3. XELJANZ XR [Suspect]
     Active Substance: TOFACITINIB CITRATE
     Dosage: 11 MG, UNK
     Dates: start: 20170327
  4. XELJANZ XR [Suspect]
     Active Substance: TOFACITINIB CITRATE
     Dosage: 11 MG, 1X/DAY
     Route: 048
     Dates: start: 20161024

REACTIONS (12)
  - Chest pain [Unknown]
  - Proctitis ulcerative [Unknown]
  - Rectal haemorrhage [Unknown]
  - Dyspnoea [Unknown]
  - Cellulitis [Unknown]
  - Haematochezia [Unknown]
  - Pharyngitis [Unknown]
  - Depression [Unknown]
  - Neoplasm malignant [Unknown]
  - Gastrointestinal haemorrhage [Unknown]
  - Osteomyelitis [Unknown]
  - Rheumatoid arthritis [Unknown]

NARRATIVE: CASE EVENT DATE: 20170707
